FAERS Safety Report 6337299-0 (Version None)
Quarter: 2009Q3

REPORT INFORMATION
  Report Type: 
  Country: None (occurrence: None)
  Receive Date: 20090828
  Receipt Date: 20090828
  Transmission Date: 20100115
  Serious: Yes (Hospitalization)
  Sender: FDA-Public Use
  Company Number: None

PATIENT
  Age: 85 Year
  Sex: Male

DRUGS (11)
  1. WARFARIN SODIUM [Suspect]
     Indication: ANTICOAGULANT THERAPY
     Dosage: 4MG EVERY OTHER DAY PO
     Route: 048
     Dates: start: 20090712, end: 20090724
  2. WARFARIN SODIUM [Suspect]
     Indication: ATRIAL FIBRILLATION
     Dosage: 4MG EVERY OTHER DAY PO
     Route: 048
     Dates: start: 20090712, end: 20090724
  3. WARFARIN SODIUM [Suspect]
     Dosage: 5MG EVERY OTHER DAY
  4. SIMVASTATIN [Concomitant]
  5. ASPIRIN [Concomitant]
  6. CARVEDILOL [Concomitant]
  7. MEGESTROL ACETATE [Concomitant]
  8. ISORDIL [Concomitant]
  9. TIOTROPIUM [Concomitant]
  10. POTASSIUM CHLORIDE [Concomitant]
  11. FUROSEMIDE [Concomitant]

REACTIONS (4)
  - DYSPNOEA [None]
  - HAEMATOCRIT DECREASED [None]
  - HAEMOGLOBIN DECREASED [None]
  - INTERNATIONAL NORMALISED RATIO INCREASED [None]
